FAERS Safety Report 20588895 (Version 1)
Quarter: 2022Q1

REPORT INFORMATION
  Report Type: Spontaneous
  Country: FR (occurrence: FR)
  Receive Date: 20220314
  Receipt Date: 20220314
  Transmission Date: 20220423
  Serious: Yes (Hospitalization)
  Sender: FDA-Public Use
  Company Number: None

PATIENT
  Age: 75 Year
  Sex: Male
  Weight: 81 kg

DRUGS (4)
  1. VECTIBIX [Suspect]
     Active Substance: PANITUMUMAB
     Indication: Colorectal cancer
     Dosage: 325 MILLIGRAM, 20 MG/ML, SOLUTION FOR INFUSION, C3/C4 WITH 33% DOSE REDUCTION
     Route: 041
     Dates: start: 20210906
  2. VECTIBIX [Suspect]
     Active Substance: PANITUMUMAB
     Dosage: UNK (C3/C4 WITH 33% DOSE REDUCTION)
     Route: 041
     Dates: start: 20210906
  3. OXALIPLATIN [Suspect]
     Active Substance: OXALIPLATIN
     Indication: Colorectal cancer
     Dosage: C3/C4 WITH 50% DOSE REDUCTION, 5 MG/ML, DILUTABLE SOLUTION FOR INFUSION
     Route: 041
     Dates: start: 20210906
  4. FLUOROURACIL [Concomitant]
     Active Substance: FLUOROURACIL
     Indication: Colorectal cancer
     Dosage: C3/C4 WITH 28% DOSE REDUCTION PERFION ON 44H
     Route: 042
     Dates: start: 20210906

REACTIONS (1)
  - Thrombocytopenia [Recovered/Resolved]

NARRATIVE: CASE EVENT DATE: 20210906
